FAERS Safety Report 18539861 (Version 1)
Quarter: 2020Q4

REPORT INFORMATION
  Report Type: Spontaneous
  Country: US (occurrence: US)
  Receive Date: 20201005
  Receipt Date: 20201005
  Transmission Date: 20210114
  Serious: Yes (Other)
  Sender: FDA-Public Use
  Company Number: None

PATIENT
  Age: 5 Decade
  Sex: Female

DRUGS (2)
  1. OSELTAMIVIR [Suspect]
     Active Substance: OSELTAMIVIR
     Indication: COVID-19
     Route: 048
  2. INTERFERON [Suspect]
     Active Substance: INTERFERON
     Indication: COVID-19
     Route: 055

REACTIONS (7)
  - Lymphocyte count decreased [None]
  - Cough [None]
  - General physical health deterioration [None]
  - Oxygen saturation decreased [None]
  - Pyrexia [None]
  - COVID-19 [None]
  - White blood cell count decreased [None]
